FAERS Safety Report 9928522 (Version 4)
Quarter: 2014Q2

REPORT INFORMATION
  Report Type: Spontaneous
  Country: US (occurrence: US)
  Receive Date: 20140227
  Receipt Date: 20140501
  Transmission Date: 20141212
  Serious: Yes (Other)
  Sender: FDA-Public Use
  Company Number: US-009507513-1402USA012890

PATIENT
  Age: 76 Year
  Sex: Male

DRUGS (3)
  1. EPTIFIBATIDE [Suspect]
     Indication: POSTOPERATIVE CARE
     Dosage: UNK
     Route: 042
  2. ASPIRIN [Concomitant]
  3. PLAVIX [Concomitant]

REACTIONS (9)
  - Pulmonary alveolar haemorrhage [Recovering/Resolving]
  - Haematuria [Recovered/Resolved]
  - Pulmonary hypertension [Recovering/Resolving]
  - Haemoptysis [Recovered/Resolved]
  - Dyspnoea [Unknown]
  - Breath sounds abnormal [Unknown]
  - Crepitations [Unknown]
  - Chest X-ray abnormal [Recovering/Resolving]
  - Haemoglobin decreased [Unknown]
